FAERS Safety Report 22119146 (Version 1)
Quarter: 2023Q1

REPORT INFORMATION
  Report Type: Spontaneous
  Country: US (occurrence: None)
  Receive Date: 20230320
  Receipt Date: 20230320
  Transmission Date: 20230418
  Serious: Yes (Other)
  Sender: FDA-Public Use
  Company Number: None

PATIENT
  Sex: Female

DRUGS (2)
  1. TYRVAYA [Suspect]
     Active Substance: VARENICLINE TARTRATE
     Indication: Inflammation
     Dosage: OTHER QUANTITY : 1 SPRAY(S)?FREQUENCY : TWICE A DAY?OTHER ROUTE : NOSTRIL?
     Route: 050
  2. TYRVAYA [Suspect]
     Active Substance: VARENICLINE TARTRATE
     Indication: Dry eye

REACTIONS (5)
  - Petechiae [None]
  - Epistaxis [None]
  - Oropharyngeal pain [None]
  - Sneezing [None]
  - Rhinorrhoea [None]
